FAERS Safety Report 21159272 (Version 2)
Quarter: 2022Q3

REPORT INFORMATION
  Report Type: Report from Study
  Country: CA (occurrence: CA)
  Receive Date: 20220802
  Receipt Date: 20220817
  Transmission Date: 20221027
  Serious: Yes (Other)
  Sender: FDA-Public Use
  Company Number: CA-TAKEDA-2022TUS051320

PATIENT
  Age: 65 Year
  Sex: Female

DRUGS (4)
  1. VEDOLIZUMAB [Suspect]
     Active Substance: VEDOLIZUMAB
     Indication: Colitis ulcerative
     Dosage: 300 MILLIGRAM
     Route: 042
     Dates: start: 20220520
  2. VEDOLIZUMAB [Suspect]
     Active Substance: VEDOLIZUMAB
     Dosage: 300 MILLIGRAM, Q4WEEKS
     Route: 042
     Dates: start: 20220808
  3. MESALAMINE [Concomitant]
     Active Substance: MESALAMINE
     Dosage: 4.8 MILLIGRAM, QD
  4. ENTOCORT [Concomitant]
     Active Substance: BUDESONIDE
     Dosage: UNK UNK, QD

REACTIONS (4)
  - Colitis ulcerative [Unknown]
  - Diverticulitis [Unknown]
  - Intestinal polyp [Unknown]
  - Off label use [Unknown]

NARRATIVE: CASE EVENT DATE: 20220808
